FAERS Safety Report 7518410-2 (Version None)
Quarter: 2011Q2

REPORT INFORMATION
  Report Type: 
  Country: None (occurrence: None)
  Receive Date: 20110523
  Receipt Date: 20110511
  Transmission Date: 20111010
  Serious: Yes (Other)
  Sender: FDA-Public Use
  Company Number: GER/ UKI/ 11/ 0018259

PATIENT
  Age: 81 Year
  Sex: Male
  Weight: 80 kg

DRUGS (11)
  1. ALFUZOSIN HYDROCHLORIDE [Concomitant]
  2. ATENOLOL [Concomitant]
  3. AMLODIPINE [Concomitant]
  4. FERROUS FUMARATE [Concomitant]
  5. BETAMETHASONE VALERATE [Concomitant]
  6. OMEPRAZOLE [Concomitant]
  7. MOVICOL (NULYTELY /01053601/) [Concomitant]
  8. ASPIRIN [Concomitant]
  9. CLOPIDOGREL [Suspect]
     Indication: CEREBROVASCULAR ACCIDENT
     Dosage: 75 MG, ORAL
     Route: 048
     Dates: start: 20110307, end: 20110421
  10. BENDROFLUMETHIAZIDE (BENDROFLUMETHIAZIDE) [Concomitant]
  11. LISINOPRIL [Concomitant]

REACTIONS (1)
  - VASCULITIC RASH [None]
